FAERS Safety Report 17458392 (Version 1)
Quarter: 2020Q1

REPORT INFORMATION
  Report Type: Spontaneous
  Country: RO (occurrence: RO)
  Receive Date: 20200225
  Receipt Date: 20200225
  Transmission Date: 20200409
  Serious: Yes (Other)
  Sender: FDA-Public Use
  Company Number: RO-MYLANLABS-2020M1019913

PATIENT
  Age: 53 Year
  Sex: Female

DRUGS (2)
  1. TRASTUZUMAB. [Suspect]
     Active Substance: TRASTUZUMAB
     Indication: BREAST CANCER
     Dosage: 6 CYCLES, SOLUTION FOR INFUSION
     Route: 042
     Dates: start: 20130701
  2. VINORELBINA                        /00988501/ [Concomitant]
     Active Substance: VINORELBINE TARTRATE
     Indication: BREAST CANCER
     Dosage: 6 CYCLES, 1 QW
     Route: 048
     Dates: start: 20130701, end: 201308

REACTIONS (5)
  - Hypercholesterolaemia [Not Recovered/Not Resolved]
  - Cardiac hypertrophy [Unknown]
  - Hyperglycaemia [Recovered/Resolved]
  - Hepatocellular injury [Recovered/Resolved]
  - Ejection fraction decreased [Not Recovered/Not Resolved]
